FAERS Safety Report 9414214 (Version 2)
Quarter: 2013Q3

REPORT INFORMATION
  Report Type: Spontaneous
  Country: US (occurrence: US)
  Receive Date: 20130723
  Receipt Date: 20130806
  Transmission Date: 20140515
  Serious: No
  Sender: FDA-Public Use
  Company Number: US-BAYER-2013-088818

PATIENT
  Sex: Female

DRUGS (1)
  1. ESTRADIOL HEMIHYDRATE (PATCH) [Suspect]
     Dosage: 0.1 MG, QD

REACTIONS (2)
  - Inappropriate schedule of drug administration [None]
  - Product adhesion issue [None]
